FAERS Safety Report 7295551-9 (Version None)
Quarter: 2011Q1

REPORT INFORMATION
  Report Type: 
  Country: None (occurrence: None)
  Receive Date: 20110216
  Receipt Date: 20110207
  Transmission Date: 20110831
  Serious: Yes (Hospitalization)
  Sender: FDA-Public Use
  Company Number: CA-JNJFOC-20101101182

PATIENT
  Sex: Female
  Weight: 60 kg

DRUGS (6)
  1. HYDROCORTISONE [Concomitant]
     Indication: PREMEDICATION
     Route: 042
  2. OXYCODONE [Concomitant]
     Dosage: 25 TABLETS
     Route: 048
  3. REMICADE [Suspect]
     Indication: CROHN'S DISEASE
     Route: 042
  4. ADVIL [Concomitant]
  5. TYLENOL [Concomitant]
     Dosage: FOR 2 WEEKS
     Route: 048
  6. IBUPROFEN [Concomitant]
     Dosage: FOR 2 WEEKS
     Route: 048

REACTIONS (2)
  - PANCREATITIS ACUTE [None]
  - CHOLELITHIASIS [None]
